FAERS Safety Report 5443047-9 (Version None)
Quarter: 2007Q3

REPORT INFORMATION
  Report Type: 
  Country: None (occurrence: None)
  Receive Date: 20070905
  Receipt Date: 20070830
  Transmission Date: 20080115
  Serious: Yes (Other)
  Sender: FDA-Public Use
  Company Number: GB-ALLERGAN-0709650US

PATIENT

DRUGS (1)
  1. DYSPORT [Suspect]
     Indication: DISABILITY
     Route: 030

REACTIONS (1)
  - JOINT DISLOCATION [None]
